FAERS Safety Report 6763879-4 (Version None)
Quarter: 2010Q2

REPORT INFORMATION
  Report Type: 
  Country: None (occurrence: None)
  Receive Date: 20100610
  Receipt Date: 20100531
  Transmission Date: 20101027
  Serious: Yes (Other)
  Sender: FDA-Public Use
  Company Number: FR-PFIZER INC-2010054292

PATIENT
  Age: 70 Year
  Sex: Male
  Weight: 68 kg

DRUGS (4)
  1. ZITHROMAX [Suspect]
     Indication: DENTAL IMPLANTATION
     Dosage: 500 MG (2 DF), 1X/DAY (AT MIDDAY)
     Route: 048
     Dates: start: 20100428, end: 20100429
  2. ASPEGIC 1000 [Concomitant]
     Dosage: UNK
  3. LODALES [Concomitant]
     Indication: HYPERCHOLESTEROLAEMIA
     Dosage: UNK
  4. HOMEOPATICS NOS [Concomitant]

REACTIONS (1)
  - HAEMATURIA [None]
